FAERS Safety Report 19244631 (Version 5)
Quarter: 2021Q4

REPORT INFORMATION
  Report Type: Report from Study
  Country: CA (occurrence: CA)
  Receive Date: 20210511
  Receipt Date: 20211007
  Transmission Date: 20220304
  Serious: Yes (Hospitalization)
  Sender: FDA-Public Use
  Company Number: CA-009507513-2008CAN006070

PATIENT
  Age: 75 Year
  Sex: Female
  Weight: 61 kg

DRUGS (49)
  1. PACLITAXEL [Suspect]
     Active Substance: PACLITAXEL
     Indication: Non-small cell lung cancer stage IV
     Dosage: 100 MILLIGRAM/SQ.METER
     Route: 042
     Dates: start: 20200312, end: 20200625
  2. PACLITAXEL [Suspect]
     Active Substance: PACLITAXEL
     Dosage: 100 MILLIGRAM/SQ. METER
     Route: 042
     Dates: start: 20200702, end: 20200702
  3. PACLITAXEL [Suspect]
     Active Substance: PACLITAXEL
     Dosage: 80 MILLIGRAM/SQ.METER
     Route: 042
     Dates: start: 20200702, end: 20200702
  4. OLAPARIB [Suspect]
     Active Substance: OLAPARIB
     Indication: Non-small cell lung cancer stage IV
     Dosage: 600 MILLIGRAM
     Route: 048
     Dates: start: 20200723, end: 20200723
  5. OLAPARIB [Suspect]
     Active Substance: OLAPARIB
     Dosage: 600 MILLIGRAM
     Route: 048
     Dates: start: 20200724, end: 20200806
  6. OLAPARIB [Suspect]
     Active Substance: OLAPARIB
     Dosage: 600 MILLIGRAM
     Route: 048
     Dates: start: 20200724, end: 20200724
  7. PEMBROLIZUMAB [Suspect]
     Active Substance: PEMBROLIZUMAB
     Indication: Non-small cell lung cancer stage IV
     Dosage: 200 MILLIEQUIVALENTS
     Route: 042
     Dates: start: 20200312
  8. PEMBROLIZUMAB [Suspect]
     Active Substance: PEMBROLIZUMAB
     Dosage: 200 MILLIGRAM
     Route: 042
     Dates: start: 20200618, end: 20200618
  9. PEMBROLIZUMAB [Suspect]
     Active Substance: PEMBROLIZUMAB
     Dosage: 200 MILLIGRAM
     Route: 042
     Dates: start: 20210722
  10. CARBOPLATIN [Concomitant]
     Active Substance: CARBOPLATIN
     Indication: Non-small cell lung cancer stage IV
     Dosage: AUC OF 6 MG/ML/MIN ON DAY 1
     Route: 042
     Dates: start: 20200312, end: 20200514
  11. CARBOPLATIN [Concomitant]
     Active Substance: CARBOPLATIN
     Dosage: AUC OF 6 MG/ML/MIN ON DAY 1
     Route: 042
     Dates: start: 20200618, end: 20200618
  12. ACETAMINOPHEN [Concomitant]
     Active Substance: ACETAMINOPHEN
     Indication: Arthralgia
     Route: 048
     Dates: start: 197001
  13. PANTOPRAZOLE SODIUM [Concomitant]
     Active Substance: PANTOPRAZOLE SODIUM
     Indication: Gastric ulcer
     Dosage: 40 MILLIGRAM
     Route: 048
     Dates: start: 197401
  14. MOTILIUM [Concomitant]
     Active Substance: DOMPERIDONE
     Indication: Gastric ulcer
     Route: 048
     Dates: start: 197401
  15. GAVISCON [Concomitant]
     Active Substance: ALUMINUM HYDROXIDE\MAGNESIUM CARBONATE
     Indication: Dyspepsia
     Route: 048
     Dates: start: 197701
  16. bupivacaine hydrochloride/methylprednisolone acetate [Concomitant]
     Indication: Arthralgia
     Dosage: TOTAL DAILY DOSAGE: 1 SYRINGE, PRN
     Route: 008
     Dates: start: 198001
  17. ATIVAN [Concomitant]
     Active Substance: LORAZEPAM
     Indication: Insomnia
     Dosage: 1 MILLIGRAM
     Route: 048
     Dates: start: 200001
  18. LYRICA [Concomitant]
     Active Substance: PREGABALIN
     Indication: Pain in extremity
     Dosage: 600 MILLIGRAM
     Route: 048
     Dates: start: 201001, end: 20200720
  19. ALBUTEROL SULFATE\IPRATROPIUM BROMIDE [Concomitant]
     Active Substance: ALBUTEROL SULFATE\IPRATROPIUM BROMIDE
     Indication: Asthma
     Dosage: 2 DOSAGE FORMS
     Route: 055
     Dates: start: 201501
  20. calcium/ vitamin D [Concomitant]
     Indication: Osteoporosis prophylaxis
     Route: 048
     Dates: start: 201701
  21. calcium/ vitamin D [Concomitant]
     Dosage: 500 MILLIGRAM
     Route: 048
     Dates: start: 201701
  22. VOLTAREN [Concomitant]
     Active Substance: DICLOFENAC SODIUM
     Indication: Osteoarthritis
     Dosage: 2 DOSAGE FORMS
     Route: 003
     Dates: start: 201701
  23. MINERALS\VITAMINS [Concomitant]
     Active Substance: MINERALS\VITAMINS
     Indication: Prophylaxis
     Dosage: 2 DOSAGE FORMS
     Route: 048
     Dates: start: 201902
  24. COLACE [Concomitant]
     Active Substance: DOCUSATE SODIUM
     Indication: Constipation
     Route: 048
     Dates: start: 20190604
  25. LAX A DAY [Concomitant]
     Indication: Constipation
     Dosage: 17 GRAM
     Route: 048
     Dates: start: 20200130
  26. HYDROMORPHONE [Concomitant]
     Active Substance: HYDROMORPHONE
     Indication: Pain in extremity
     Route: 048
     Dates: start: 20200211, end: 20200720
  27. HYDROMORPHONE [Concomitant]
     Active Substance: HYDROMORPHONE
     Dosage: TOTAL DAILY DOSE: 2 MG, PRN
     Route: 048
     Dates: start: 20200721, end: 20200806
  28. AREDIA [Concomitant]
     Active Substance: PAMIDRONATE DISODIUM
     Indication: Osteoporosis prophylaxis
     Dosage: 3 MILLIGRAM
     Route: 042
     Dates: start: 20200214
  29. HYDROMORPHONE [Concomitant]
     Active Substance: HYDROMORPHONE
     Indication: Pain in extremity
     Dosage: 12 MILLIGRAM
     Route: 048
     Dates: start: 20200228, end: 20200721
  30. PROCHLORPERAZINE [Concomitant]
     Active Substance: PROCHLORPERAZINE
     Indication: Nausea
     Dosage: 10 MILLIGRAM
     Route: 048
     Dates: start: 20200312
  31. ENSURE [Concomitant]
     Active Substance: AMINO ACIDS\DEXTROSE\ELECTROLYTES NOS\SOYBEAN OIL\VITAMINS
     Indication: Decreased appetite
     Dosage: 500 MILLILITER
     Route: 048
     Dates: start: 20200329
  32. ST IVES DAILY HYDRATING LOTION WITH VITAMIN E [Concomitant]
     Indication: Pruritus
     Dosage: 1 DOSAGE FORMS
     Route: 003
     Dates: start: 20200603, end: 20200716
  33. LACTULOSE [Concomitant]
     Active Substance: LACTULOSE
     Indication: Constipation
     Dosage: 60 MILLILITER
     Route: 048
     Dates: start: 20200615
  34. ALBUTEROL [Concomitant]
     Active Substance: ALBUTEROL
     Indication: Asthma
     Route: 048
     Dates: start: 2015
  35. DEPO-MEDROL [Concomitant]
     Active Substance: METHYLPREDNISOLONE ACETATE
     Indication: Neck pain
     Route: 014
     Dates: start: 1980
  36. Moisturzing lotion [Concomitant]
     Indication: Pruritus
     Route: 014
     Dates: start: 20200603, end: 20200716
  37. Lovenos [Concomitant]
     Indication: Thrombosis prophylaxis
     Route: 058
     Dates: start: 20200807, end: 20200820
  38. PREDNISONE [Concomitant]
     Active Substance: PREDNISONE
     Indication: Chronic obstructive pulmonary disease
     Route: 048
     Dates: start: 20200808, end: 20200812
  39. PREDNISONE [Concomitant]
     Active Substance: PREDNISONE
     Route: 048
     Dates: start: 20200813, end: 20200814
  40. IRON [Concomitant]
     Active Substance: IRON
     Indication: Iron deficiency
     Route: 048
     Dates: start: 20200818
  41. IRON [Concomitant]
     Active Substance: IRON
     Route: 048
     Dates: start: 20200813, end: 20200814
  42. GLYCOPYRRONIUM\INDACATEROL [Concomitant]
     Active Substance: GLYCOPYRRONIUM\INDACATEROL
     Indication: Chronic obstructive pulmonary disease
     Route: 048
     Dates: start: 20200819, end: 20200928
  43. GLYCOPYRRONIUM\INDACATEROL [Concomitant]
     Active Substance: GLYCOPYRRONIUM\INDACATEROL
     Route: 048
     Dates: start: 20200813, end: 20200814
  44. FLEXERIL [Concomitant]
     Active Substance: CYCLOBENZAPRINE HYDROCHLORIDE
     Indication: Neck pain
     Route: 048
     Dates: start: 20200819
  45. FLEXERIL [Concomitant]
     Active Substance: CYCLOBENZAPRINE HYDROCHLORIDE
     Route: 048
     Dates: start: 20200813, end: 20200814
  46. AMOXICILLIN\CLAVULANATE POTASSIUM [Concomitant]
     Active Substance: AMOXICILLIN\CLAVULANATE POTASSIUM
     Indication: Bronchitis
     Route: 065
  47. SPIRIVA RESPIMAT [Concomitant]
     Active Substance: TIOTROPIUM BROMIDE
     Indication: Dyspnoea
     Route: 065
  48. SYMBICORT [Concomitant]
     Active Substance: BUDESONIDE\FORMOTEROL FUMARATE DIHYDRATE
     Indication: Chronic obstructive pulmonary disease
     Route: 065
  49. SYMBICORT [Concomitant]
     Active Substance: BUDESONIDE\FORMOTEROL FUMARATE DIHYDRATE
     Indication: Dyspnoea

REACTIONS (1)
  - Chronic obstructive pulmonary disease [Recovered/Resolved]

NARRATIVE: CASE EVENT DATE: 20200721
